FAERS Safety Report 9539013 (Version 1)
Quarter: 2013Q2

REPORT INFORMATION
  Report Type: Spontaneous
  Country: US (occurrence: None)
  Receive Date: 20130521
  Receipt Date: 20130521
  Transmission Date: 20140414
  Serious: No
  Sender: FDA-Public Use
  Company Number: 1000042806

PATIENT
  Age: 80 Year
  Sex: Female

DRUGS (11)
  1. TUDORZA PRESSAIR [Suspect]
     Indication: CHRONIC OBSTRUCTIVE PULMONARY DISEASE
     Dosage: 800 MCG (400 MCG, 2 IN 1 D), RESPIRATORY (INHALATION)?
     Route: 055
     Dates: start: 201302
  2. TUDORZA PRESSAIR [Suspect]
     Indication: EMPHYSEMA
     Dosage: 800 MCG (400 MCG, 2 IN 1 D), RESPIRATORY (INHALATION)?
     Route: 055
     Dates: start: 201302
  3. DIGOXIN (DIGOXIN) (DIGOXIN) [Concomitant]
  4. CARVEDILOL (CARVEDILOL) (CARVEDILOL) [Concomitant]
  5. FUROSEMIDE [Concomitant]
  6. CLONIDINE (CLONIDINE) (CLONIDINE) [Concomitant]
  7. LIPITOR (ATORVASTATIN CALCIUM) (ATORVASTATIN CALCIUM) [Concomitant]
  8. BENICAR (OLMESARTAN MEDOXOMIL) (OLMESARTAN MEDOXOMIL) [Concomitant]
  9. TRILIPIX (CHOLINE FENOFIBRATE) (CHOLINE FENOFIBRATE) [Concomitant]
  10. ONGLYZA (SAXAGLIPTIN HYDROCHLORIDE) (SAXAGLIPTIN HYDROCHLORIDE) [Concomitant]
  11. ALPRAZOLAM (ALPRAZOLAM) (ALPRAZOLAM) [Concomitant]

REACTIONS (3)
  - Dyspnoea [None]
  - Fatigue [None]
  - Drug ineffective [None]
